FAERS Safety Report 8185705-1 (Version None)
Quarter: 2012Q1

REPORT INFORMATION
  Report Type: 
  Country: None (occurrence: None)
  Receive Date: 20120305
  Receipt Date: 20120222
  Transmission Date: 20120608
  Serious: Yes (Other)
  Sender: FDA-Public Use
  Company Number: JP-ELI_LILLY_AND_COMPANY-JP201202006543

PATIENT
  Age: 59 Year
  Sex: Female

DRUGS (3)
  1. BYETTA [Suspect]
     Indication: DIABETES MELLITUS
     Dosage: 20 UG, UNK
     Route: 058
     Dates: end: 20120117
  2. METFORMIN HCL [Concomitant]
     Indication: DIABETES MELLITUS
     Dosage: 500 MG, UNK
     Route: 048
     Dates: end: 20120130
  3. AMARYL [Concomitant]
     Dosage: 2 MG, UNK
     Route: 048

REACTIONS (3)
  - ENTEROCOLITIS [None]
  - NAUSEA [None]
  - DIABETIC KETOACIDOSIS [None]
